FAERS Safety Report 7407077-X (Version None)
Quarter: 2011Q2

REPORT INFORMATION
  Report Type: 
  Country: None (occurrence: None)
  Receive Date: 20110411
  Receipt Date: 20110331
  Transmission Date: 20111010
  Serious: Yes (Other)
  Sender: FDA-Public Use
  Company Number: SI-ROCHE-769141

PATIENT
  Sex: Female

DRUGS (1)
  1. AVASTIN [Suspect]
     Dosage: ROUTE, DOSE AND FREQUENCY WAS NOT REPORTED
     Route: 065

REACTIONS (6)
  - METRORRHAGIA [None]
  - HERPES ZOSTER [None]
  - HAEMATOCHEZIA [None]
  - EPISTAXIS [None]
  - PROTEINURIA [None]
  - HYPERTENSION [None]
